FAERS Safety Report 9861200 (Version 1)
Quarter: 2014Q1

REPORT INFORMATION
  Report Type: Spontaneous
  Country: ZA (occurrence: ZA)
  Receive Date: 20140202
  Receipt Date: 20140202
  Transmission Date: 20141002
  Serious: No
  Sender: FDA-Public Use
  Company Number: ZA-ALLERGAN-1303950US

PATIENT
  Sex: Female
  Weight: 62.2 kg

DRUGS (2)
  1. BOTOX [Suspect]
     Indication: SKIN WRINKLING
     Dosage: 22 UNITS, SINGLE
     Route: 030
     Dates: start: 20130130, end: 20130130
  2. BOTOX [Suspect]
     Indication: SKIN WRINKLING

REACTIONS (2)
  - Wrong technique in drug usage process [Unknown]
  - Therapeutic response decreased [Unknown]
